FAERS Safety Report 5453985-9 (Version None)
Quarter: 2007Q3

REPORT INFORMATION
  Report Type: 
  Country: None (occurrence: None)
  Receive Date: 20070917
  Receipt Date: 20070228
  Transmission Date: 20080115
  Serious: Yes (Other)
  Sender: FDA-Public Use
  Company Number: US-ASTRAZENECA-2006UW03001

PATIENT
  Sex: Female
  Weight: 155.9 kg

DRUGS (2)
  1. SEROQUEL [Suspect]
     Route: 048
     Dates: start: 19990701, end: 20000101
  2. PSYCHIATRIC MEDICATION [Concomitant]

REACTIONS (5)
  - ABNORMAL BEHAVIOUR [None]
  - DIABETES MELLITUS [None]
  - DIABETIC KETOACIDOSIS [None]
  - SUICIDAL IDEATION [None]
  - WEIGHT INCREASED [None]
